FAERS Safety Report 5682610-7 (Version None)
Quarter: 2008Q1

REPORT INFORMATION
  Report Type: 
  Country: None (occurrence: None)
  Receive Date: 20080327
  Receipt Date: 20080227
  Transmission Date: 20080703
  Serious: No
  Sender: FDA-Public Use
  Company Number: US-BRISTOL-MYERS SQUIBB COMPANY-14100291

PATIENT
  Sex: Female

DRUGS (2)
  1. DASATINIB [Suspect]
     Dosage: FREQUENCY: X8 DAYS
  2. DACARBAZINE [Suspect]
     Dosage: FREQUENCY: X8 DAYS

REACTIONS (1)
  - RESTLESSNESS [None]
